FAERS Safety Report 12111344 (Version 1)
Quarter: 2016Q1

REPORT INFORMATION
  Report Type: Spontaneous
  Country: US (occurrence: US)
  Receive Date: 20160224
  Receipt Date: 20160224
  Transmission Date: 20160526
  Serious: Yes (Other)
  Sender: FDA-Public Use
  Company Number: US-INCYTE CORPORATION-2015IN006901

PATIENT
  Age: 68 Year
  Sex: Female
  Weight: 63.7 kg

DRUGS (3)
  1. RITUXAN [Concomitant]
     Active Substance: RITUXIMAB
     Indication: PRODUCT USED FOR UNKNOWN INDICATION
     Dosage: 375 MG/M2 ON D1
  2. BENDAMUSTINE [Concomitant]
     Active Substance: BENDAMUSTINE
     Indication: PRODUCT USED FOR UNKNOWN INDICATION
     Dosage: 90 MG/M2 ON D1 AND D2, GIVEN EVERY 28 DAYS
  3. JAKAFI [Suspect]
     Active Substance: RUXOLITINIB
     Indication: POLYCYTHAEMIA VERA
     Dosage: 10 MG, BID
     Route: 048
     Dates: start: 201501

REACTIONS (13)
  - Abdominal pain upper [Recovered/Resolved]
  - Diarrhoea [Unknown]
  - Lymphoma [Not Recovered/Not Resolved]
  - Flatulence [Unknown]
  - Rectal haemorrhage [Unknown]
  - Trigeminal neuralgia [Unknown]
  - Constipation [Unknown]
  - Gastrointestinal infection [Unknown]
  - Abdominal pain upper [Unknown]
  - Hepatosplenomegaly [Unknown]
  - Nausea [Unknown]
  - Neck mass [Unknown]
  - Abdominal pain [Unknown]

NARRATIVE: CASE EVENT DATE: 20151210
